FAERS Safety Report 11458942 (Version 1)
Quarter: 2015Q3

REPORT INFORMATION
  Report Type: Spontaneous
  Country: GB (occurrence: GB)
  Receive Date: 20150904
  Receipt Date: 20150904
  Transmission Date: 20151125
  Serious: Yes (Other)
  Sender: FDA-Public Use
  Company Number: GB-ROCHE-1625463

PATIENT
  Age: 52 Year
  Sex: Female

DRUGS (2)
  1. TRASTUZUMAB [Suspect]
     Active Substance: TRASTUZUMAB
     Indication: BREAST CANCER
     Route: 065
  2. KADCYLA [Suspect]
     Active Substance: ADO-TRASTUZUMAB EMTANSINE
     Indication: PRODUCT USED FOR UNKNOWN INDICATION
     Route: 065

REACTIONS (8)
  - Subdural haematoma [Unknown]
  - Metastases to liver [Unknown]
  - Dilatation ventricular [Unknown]
  - Metastases to bone [Unknown]
  - Seizure [Unknown]
  - Epistaxis [Unknown]
  - Platelet count decreased [Unknown]
  - Cardiotoxicity [Unknown]
